FAERS Safety Report 9983736 (Version 2)
Quarter: 2014Q1

REPORT INFORMATION
  Report Type: Spontaneous
  Country: US (occurrence: US)
  Receive Date: 20140307
  Receipt Date: 20140307
  Transmission Date: 20141002
  Serious: Yes (Hospitalization, Other)
  Sender: FDA-Public Use
  Company Number: US-BAXTER-2014BAX010209

PATIENT
  Age: 61 Year
  Sex: Male

DRUGS (4)
  1. DIANEAL LOW CALCIUM [Suspect]
     Indication: RENAL FAILURE CHRONIC
     Route: 033
     Dates: start: 2011
  2. DIANEAL LOW CALCIUM [Suspect]
     Route: 033
     Dates: start: 2011
  3. DIANEAL LOW CALCIUM [Suspect]
     Indication: RENAL FAILURE CHRONIC
     Route: 033
     Dates: start: 2011
  4. DIANEAL LOW CALCIUM [Suspect]
     Route: 033
     Dates: start: 2011

REACTIONS (7)
  - Heart valve incompetence [Recovered/Resolved]
  - Mitral valve disease [Recovered/Resolved]
  - Coronary artery occlusion [Recovered/Resolved]
  - Heart rate decreased [Recovered/Resolved]
  - Mitral valve calcification [Recovered/Resolved]
  - Swelling [Not Recovered/Not Resolved]
  - Ultrafiltration failure [Unknown]
